FAERS Safety Report 5770072-0 (Version None)
Quarter: 2008Q2

REPORT INFORMATION
  Report Type: 
  Country: None (occurrence: None)
  Receive Date: 20080613
  Receipt Date: 20080421
  Transmission Date: 20081010
  Serious: No
  Sender: FDA-Public Use
  Company Number: US-ABBOTT-08P-163-0448104-00

PATIENT
  Sex: Male
  Weight: 51.756 kg

DRUGS (5)
  1. HUMIRA [Suspect]
     Indication: CROHN'S DISEASE
     Dosage: STARTER DOSE
     Route: 058
     Dates: start: 20080314, end: 20080314
  2. HUMIRA [Suspect]
     Dosage: ONCE
  3. HUMIRA [Suspect]
  4. MESALAMINE [Concomitant]
     Indication: CROHN'S DISEASE
     Route: 048
  5. METHOTREXATE [Concomitant]
     Indication: CROHN'S DISEASE
     Route: 048
     Dates: end: 20080229

REACTIONS (11)
  - AGEUSIA [None]
  - CANDIDIASIS [None]
  - DIARRHOEA [None]
  - DYSPHONIA [None]
  - FLATULENCE [None]
  - INFLUENZA LIKE ILLNESS [None]
  - PAIN [None]
  - PARAESTHESIA ORAL [None]
  - PYREXIA [None]
  - RESPIRATORY TRACT CONGESTION [None]
  - SINUS CONGESTION [None]
